FAERS Safety Report 10171903 (Version 2)
Quarter: 2014Q2

REPORT INFORMATION
  Report Type: Spontaneous
  Country: BR (occurrence: BR)
  Receive Date: 20140515
  Receipt Date: 20140619
  Transmission Date: 20141212
  Serious: Yes (Other)
  Sender: FDA-Public Use
  Company Number: BR-PFIZER INC-2014127980

PATIENT
  Age: 59 Year
  Sex: Female
  Weight: 73 kg

DRUGS (11)
  1. LYRICA [Suspect]
     Indication: PAIN
     Dosage: 75 MG, 2X/DAY (EVERY 12 HOURS)
     Route: 048
     Dates: start: 201304
  2. FRONTAL [Suspect]
     Indication: ANXIETY
     Dosage: 2 MG, DAILY
     Route: 048
     Dates: start: 2012
  3. FRONTAL [Suspect]
     Dosage: HALF TABLET (1 MG), DURING THE DAY,  AS NEEDED
     Route: 048
  4. DEPAKOTE ER [Concomitant]
     Indication: AFFECTIVE DISORDER
     Dosage: 250 MG, 2X/DAY (IN THE MORNING AND AT NIGHT)
  5. LOSARTAN [Concomitant]
     Indication: BLOOD PRESSURE ABNORMAL
     Dosage: 2 TABLETS (UNSPECIFIED DOSE), DAILY
     Dates: start: 2010
  6. MYTEDON [Concomitant]
     Indication: PAIN
     Dosage: 5 MG, UNSPECIFIED FREQUENCY
     Dates: start: 201403
  7. TRAMADON [Concomitant]
     Indication: PAIN
     Dosage: 6 DROPS (UNSPECIFIED DOSE), THREE TIMES A DAY (EVERY 8 HOURS)
     Dates: start: 201304
  8. CYMBALTA [Concomitant]
     Indication: DEPRESSION
     Dosage: 60 MG, DAILY
  9. CYMBALTA [Concomitant]
     Indication: PAIN
  10. STILNOX [Concomitant]
     Dosage: 1 UNIT (^12 5 MG^, REPORTED AS THIS), 1X/DAY (AT NIGHT)
  11. ULTRASEPT [Concomitant]
     Indication: PAIN
     Dosage: 1 TABLET, 4X/DAY (EVERY 6 HOURS)
     Dates: start: 201404

REACTIONS (8)
  - Spinal pain [Not Recovered/Not Resolved]
  - Bone erosion [Unknown]
  - Chondropathy [Unknown]
  - Facet joint syndrome [Not Recovered/Not Resolved]
  - Radicular syndrome [Not Recovered/Not Resolved]
  - Bursitis [Not Recovered/Not Resolved]
  - Tendonitis [Not Recovered/Not Resolved]
  - Drug ineffective [Unknown]
